FAERS Safety Report 14636554 (Version 1)
Quarter: 2018Q1

REPORT INFORMATION
  Report Type: Report from Study
  Country: FR (occurrence: FR)
  Receive Date: 20180314
  Receipt Date: 20180314
  Transmission Date: 20180509
  Serious: Yes (Death)
  Sender: FDA-Public Use
  Company Number: FR-JAZZ-2018-FR-004209

PATIENT

DRUGS (1)
  1. DEFITELIO [Suspect]
     Active Substance: DEFIBROTIDE SODIUM
     Indication: PROPHYLAXIS
     Dosage: 10 MG/KG, QD
     Dates: start: 20171019, end: 20171024

REACTIONS (3)
  - Neurological decompensation [Fatal]
  - General physical health deterioration [Fatal]
  - Respiration abnormal [Fatal]
